FAERS Safety Report 4819642-4 (Version None)
Quarter: 2005Q4

REPORT INFORMATION
  Report Type: 
  Country: None (occurrence: None)
  Receive Date: 20051102
  Receipt Date: 20051102
  Transmission Date: 20060501
  Serious: Yes (Hospitalization)
  Sender: FDA-Public Use
  Company Number: None

PATIENT
  Age: 67 Year
  Sex: Male
  Weight: 83 kg

DRUGS (2)
  1. CPT-11 (IRINOTECAN, CAMPTOSAR) [Suspect]
     Indication: NEOPLASM MALIGNANT
     Dates: start: 20050713
  2. XELODA [Suspect]
     Dosage: 500 MG X 4 BID
     Dates: start: 20050713

REACTIONS (2)
  - HAEMATEMESIS [None]
  - NECROTISING OESOPHAGITIS [None]
